FAERS Safety Report 20721849 (Version 1)
Quarter: 2022Q2

REPORT INFORMATION
  Report Type: Other
  Country: ES (occurrence: ES)
  Receive Date: 20220418
  Receipt Date: 20220418
  Transmission Date: 20220721
  Serious: Yes (Other)
  Sender: FDA-Public Use
  Company Number: ES-PHARMAAND-2022PHR00127

PATIENT
  Age: 65 Year
  Sex: Female

DRUGS (5)
  1. PEGASYS [Suspect]
     Active Substance: PEGINTERFERON ALFA-2A
     Indication: Hepatitis C
     Dosage: 180 MICROGRAM, QW
     Dates: start: 20120201, end: 20120307
  2. RIBAVIRIN [Suspect]
     Active Substance: RIBAVIRIN
     Indication: Hepatitis C
     Dosage: 1200 MG, QD
     Dates: start: 20120201, end: 20120307
  3. BOCEPREVIR [Suspect]
     Active Substance: BOCEPREVIR
     Indication: Hepatitis C
     Dosage: 2400 MILLIGRAM, QD
     Dates: start: 20120302, end: 20120307
  4. VICTRELIS [Suspect]
     Active Substance: BOCEPREVIR
     Indication: Hepatitis C
     Dosage: DOSIS UNIDAD FRECUENCIA: 2400 MG-MILIGRAMOS; DOSIS POR TOMA: 2400 MG-MILIGRAMOS; N? TOMAS POR UNIDAD
     Dates: start: 20120302, end: 20120307
  5. FUROSEMIDE [Concomitant]
     Active Substance: FUROSEMIDE
     Indication: Diuretic therapy
     Dosage: UNK
     Dates: start: 20120307, end: 20120411

REACTIONS (4)
  - Oedema [Unknown]
  - Fluid retention [Recovered/Resolved]
  - Hyponatraemia [Unknown]
  - Anaemia [Recovered/Resolved]

NARRATIVE: CASE EVENT DATE: 20120301
